FAERS Safety Report 22064247 (Version 1)
Quarter: 2023Q1

REPORT INFORMATION
  Report Type: Spontaneous
  Country: US (occurrence: None)
  Receive Date: 20230305
  Receipt Date: 20230305
  Transmission Date: 20230418
  Serious: No
  Sender: FDA-Public Use
  Company Number: None

PATIENT
  Age: 61 Year
  Sex: Female
  Weight: 62.1 kg

DRUGS (2)
  1. ATIVAN [Suspect]
     Active Substance: LORAZEPAM
     Indication: Anxiety
     Dates: start: 19910115, end: 20210716
  2. ATIVAN [Suspect]
     Active Substance: LORAZEPAM
     Indication: Chemotherapy

REACTIONS (15)
  - Depression [None]
  - Condition aggravated [None]
  - Skin burning sensation [None]
  - Head discomfort [None]
  - Dizziness [None]
  - Fear [None]
  - Asthenia [None]
  - Insomnia [None]
  - Neuralgia [None]
  - Paraesthesia [None]
  - Memory impairment [None]
  - Anxiety [None]
  - Derealisation [None]
  - Weight decreased [None]
  - Impaired quality of life [None]

NARRATIVE: CASE EVENT DATE: 20210101
